FAERS Safety Report 16415290 (Version 1)
Quarter: 2019Q3

REPORT INFORMATION
  Report Type: Spontaneous
  Country: US (occurrence: US)
  Receive Date: 20190610
  Receipt Date: 20190610
  Transmission Date: 20191004
  Serious: Yes (Other)
  Sender: FDA-Public Use
  Company Number: None

PATIENT
  Age: 76 Year
  Sex: Male
  Weight: 111.6 kg

DRUGS (1)
  1. KRYSTEXXA [Suspect]
     Active Substance: PEGLOTICASE
     Dosage: ?          OTHER FREQUENCY:EVERY TWO WEEKS;?
     Route: 041

REACTIONS (1)
  - Blood uric acid decreased [None]

NARRATIVE: CASE EVENT DATE: 20190606
